FAERS Safety Report 6477605-X (Version None)
Quarter: 2009Q4

REPORT INFORMATION
  Report Type: 
  Country: None (occurrence: None)
  Receive Date: 20091207
  Receipt Date: 20091105
  Transmission Date: 20100525
  Serious: Yes (Other)
  Sender: FDA-Public Use
  Company Number: US-BAYER-200921088NA

PATIENT
  Age: 51 Year
  Sex: Male
  Weight: 82 kg

DRUGS (26)
  1. MAGNEVIST [Suspect]
     Indication: ANGIOGRAM
     Dosage: TOTAL DAILY DOSE: 40 ML
     Route: 042
     Dates: start: 20060306, end: 20060306
  2. MAGNEVIST [Suspect]
     Dosage: TOTAL DAILY DOSE: 40 ML
     Route: 042
     Dates: start: 20060410, end: 20060410
  3. MAGNEVIST [Suspect]
     Dates: start: 20060326, end: 20060326
  4. MAGNEVIST [Suspect]
     Dosage: TOTAL DAILY DOSE: 40 ML
     Route: 042
     Dates: start: 20060713, end: 20060713
  5. PHOSLO [Concomitant]
  6. RANITIDINE [Concomitant]
  7. ASPIRIN [Concomitant]
  8. EPOGEN [Concomitant]
  9. IRON SUPPLEMENTS [Concomitant]
  10. PROGRAF [Concomitant]
  11. METOPROLOL [Concomitant]
  12. COUMADIN [Concomitant]
  13. HEPARIN [Concomitant]
  14. TACROLIMUS [Concomitant]
  15. PREDNISONE [Concomitant]
  16. CALCITRIOL [Concomitant]
     Dosage: IV PUSH
     Route: 042
  17. CALCIUM ACETATE [Concomitant]
  18. VANCOMYCIN [Concomitant]
     Dates: start: 20060301, end: 20060301
  19. GENTAMICIN [Concomitant]
     Dates: start: 20060301, end: 20060301
  20. ANCEF [Concomitant]
     Dates: start: 20060301, end: 20060301
  21. KEFLEX [Concomitant]
     Dates: start: 20060301
  22. UNSPECIFIED NON-IONIC IODINATED CONTRAST [Concomitant]
     Indication: COMPUTERISED TOMOGRAM ABDOMEN
     Route: 042
     Dates: start: 20060310, end: 20060310
  23. ORAL CONTRAST [Concomitant]
     Indication: COMPUTERISED TOMOGRAM ABDOMEN
     Route: 048
     Dates: start: 20060310, end: 20060310
  24. OMNIPAQUE 140 [Concomitant]
     Indication: VENOGRAM
     Dosage: AS USED: 70 ML
     Dates: start: 20060620, end: 20060620
  25. ISOVUE-300 [Concomitant]
     Dosage: AS USED: 100 ML
     Dates: start: 20060826, end: 20060826
  26. UNSPECIFIED CONTRAST [Concomitant]
     Indication: COMPUTERISED TOMOGRAM
     Route: 042
     Dates: start: 20060828, end: 20060828

REACTIONS (21)
  - ANXIETY [None]
  - DEFORMITY [None]
  - EMOTIONAL DISTRESS [None]
  - EXTREMITY CONTRACTURE [None]
  - GAIT DISTURBANCE [None]
  - GENERAL PHYSICAL HEALTH DETERIORATION [None]
  - JOINT CONTRACTURE [None]
  - JOINT RANGE OF MOTION DECREASED [None]
  - JOINT STIFFNESS [None]
  - MOBILITY DECREASED [None]
  - NEPHROGENIC SYSTEMIC FIBROSIS [None]
  - OEDEMA PERIPHERAL [None]
  - PAIN [None]
  - PAIN IN EXTREMITY [None]
  - QUALITY OF LIFE DECREASED [None]
  - SCAR [None]
  - SKIN FIBROSIS [None]
  - SKIN FISSURES [None]
  - SKIN HYPERTROPHY [None]
  - SKIN INDURATION [None]
  - SKIN TIGHTNESS [None]
